FAERS Safety Report 5735145-7 (Version None)
Quarter: 2008Q2

REPORT INFORMATION
  Report Type: 
  Country: None (occurrence: None)
  Receive Date: 20080512
  Receipt Date: 20080505
  Transmission Date: 20081010
  Serious: Yes (Life-Threatening, Hospitalization, Disabling, Other)
  Sender: FDA-Public Use
  Company Number: PHNU2008DE01712

PATIENT
  Sex: Male

DRUGS (2)
  1. DICLOFENAC [Suspect]
     Route: 048
  2. VOLTAREN [Suspect]
     Route: 048

REACTIONS (13)
  - ABDOMINAL PAIN [None]
  - ANAEMIA [None]
  - APPENDICECTOMY [None]
  - APPENDICITIS [None]
  - BIOPSY KIDNEY [None]
  - BLOOD CREATININE INCREASED [None]
  - BLOOD PRESSURE INCREASED [None]
  - EXERCISE TOLERANCE DECREASED [None]
  - MUSCLE ATROPHY [None]
  - RENAL FAILURE [None]
  - RENAL IMPAIRMENT [None]
  - TRANSPLANT FAILURE [None]
  - TRANSPLANT REJECTION [None]
